FAERS Safety Report 5346500-1 (Version None)
Quarter: 2007Q2

REPORT INFORMATION
  Report Type: 
  Country: None (occurrence: None)
  Receive Date: 20070605
  Receipt Date: 20070522
  Transmission Date: 20071010
  Serious: Yes (Hospitalization)
  Sender: FDA-Public Use
  Company Number: US-AMGEN-US225977

PATIENT
  Age: 53 Year
  Sex: Male
  Weight: 80.8 kg

DRUGS (10)
  1. PROCRIT [Suspect]
     Indication: MYELODYSPLASTIC SYNDROME
     Route: 065
     Dates: start: 20060908, end: 20070203
  2. CLINDAMYCIN PHOSPHATE [Concomitant]
  3. IMURAN [Concomitant]
     Dates: start: 20010301, end: 20061215
  4. NEURONTIN [Concomitant]
     Dates: start: 20010101
  5. PRILOSEC [Concomitant]
     Dates: start: 20010301
  6. DARVOCET-N 100 [Concomitant]
  7. QUININE SULFATE [Concomitant]
  8. ASACOL [Concomitant]
     Dates: start: 19950101
  9. LIDODERM PATCH (ENDO PHARMACEUTICALS) [Concomitant]
  10. PHENERGAN HCL [Concomitant]

REACTIONS (1)
  - HOSPITALISATION [None]
